FAERS Safety Report 12983760 (Version 1)
Quarter: 2016Q4

REPORT INFORMATION
  Report Type: Spontaneous
  Country: US (occurrence: US)
  Receive Date: 20161129
  Receipt Date: 20161129
  Transmission Date: 20170207
  Serious: Yes (Other)
  Sender: FDA-Public Use
  Company Number: US-LUNDBECK-DKLU2023061

PATIENT
  Age: 76 Year
  Sex: Male

DRUGS (1)
  1. NORTHERA [Suspect]
     Active Substance: DROXIDOPA
     Indication: PRODUCT USED FOR UNKNOWN INDICATION
     Route: 065
     Dates: start: 201611

REACTIONS (5)
  - Musculoskeletal stiffness [Unknown]
  - Confusional state [Unknown]
  - Headache [Unknown]
  - Abasia [Unknown]
  - Dizziness [Unknown]

NARRATIVE: CASE EVENT DATE: 20161119
